FAERS Safety Report 13908254 (Version 2)
Quarter: 2017Q3

REPORT INFORMATION
  Report Type: Report from Study
  Country: None (occurrence: CO)
  Receive Date: 20170825
  Receipt Date: 20170908
  Transmission Date: 20171127
  Serious: Yes (Hospitalization)
  Sender: FDA-Public Use
  Company Number: CO-ABBVIE-17P-036-2081130-00

PATIENT
  Age: 59 Year
  Sex: Female

DRUGS (2)
  1. NPH INSULIN  (NON-ABBVIE) [Concomitant]
     Indication: PRODUCT USED FOR UNKNOWN INDICATION
  2. ZEMPLAR [Suspect]
     Active Substance: PARICALCITOL
     Indication: HYPERPARATHYROIDISM SECONDARY
     Route: 048
     Dates: start: 20160901

REACTIONS (1)
  - Azotaemia [Not Recovered/Not Resolved]

NARRATIVE: CASE EVENT DATE: 20170813
